FAERS Safety Report 9867002 (Version 2)
Quarter: 2014Q1

REPORT INFORMATION
  Report Type: Spontaneous
  Country: DE (occurrence: DE)
  Receive Date: 20140204
  Receipt Date: 20140211
  Transmission Date: 20141002
  Serious: Yes (Life-Threatening)
  Sender: FDA-Public Use
  Company Number: DE-JNJFOC-20140200366

PATIENT
  Age: 82 Year
  Sex: Male
  Weight: 75 kg

DRUGS (2)
  1. XARELTO [Suspect]
     Indication: CEREBROVASCULAR ACCIDENT PROPHYLAXIS
     Route: 048
     Dates: start: 201312, end: 20140120
  2. XARELTO [Suspect]
     Indication: ATRIAL FIBRILLATION
     Route: 048
     Dates: start: 201312, end: 20140120

REACTIONS (3)
  - Gastrointestinal haemorrhage [Recovered/Resolved]
  - Duodenal ulcer [Recovered/Resolved]
  - Shock haemorrhagic [Recovered/Resolved]
